FAERS Safety Report 15506068 (Version 1)
Quarter: 2018Q4

REPORT INFORMATION
  Report Type: Spontaneous
  Country: US (occurrence: US)
  Receive Date: 20181016
  Receipt Date: 20181016
  Transmission Date: 20190205
  Serious: Yes (Other)
  Sender: FDA-Public Use
  Company Number: US-MYLANLABS-2018M1075258

PATIENT
  Age: 60 Year
  Sex: Male

DRUGS (8)
  1. ZYRTEC [Suspect]
     Active Substance: CETIRIZINE HYDROCHLORIDE
     Indication: INJECTION SITE REACTION
  2. DAPSONE. [Suspect]
     Active Substance: DAPSONE
     Indication: PANNICULITIS
     Route: 065
  3. DAPSONE. [Suspect]
     Active Substance: DAPSONE
     Indication: INJECTION SITE REACTION
  4. BETAMETHASONE. [Suspect]
     Active Substance: BETAMETHASONE
     Indication: PANNICULITIS
     Route: 065
  5. PREDNISONE. [Suspect]
     Active Substance: PREDNISONE
     Indication: PANNICULITIS
     Route: 065
  6. ZYRTEC [Suspect]
     Active Substance: CETIRIZINE HYDROCHLORIDE
     Indication: PANNICULITIS
     Route: 065
  7. BETAMETHASONE. [Suspect]
     Active Substance: BETAMETHASONE
     Indication: INJECTION SITE REACTION
  8. PREDNISONE. [Suspect]
     Active Substance: PREDNISONE
     Indication: INJECTION SITE REACTION

REACTIONS (1)
  - Drug ineffective [Unknown]
